FAERS Safety Report 11184561 (Version 1)
Quarter: 2015Q2

REPORT INFORMATION
  Report Type: Spontaneous
  Country: SE (occurrence: SE)
  Receive Date: 20150612
  Receipt Date: 20150612
  Transmission Date: 20150821
  Serious: Yes (Hospitalization, Other)
  Sender: FDA-Public Use
  Company Number: SE-WATSON-2015-11441

PATIENT
  Age: 60 Year
  Sex: Male
  Weight: 88 kg

DRUGS (3)
  1. ENALAPRIL ACTAVIS [Suspect]
     Active Substance: ENALAPRIL
     Indication: CARDIAC SEPTAL HYPERTROPHY
     Dosage: UNK
     Route: 048
  2. ENALAPRIL ACTAVIS [Suspect]
     Active Substance: ENALAPRIL
     Indication: HYPERTENSION
     Dosage: 1 DF, DAILY
     Route: 048
     Dates: start: 201111, end: 20120112
  3. FELODIPIN ACTAVIS [Concomitant]
     Indication: PRODUCT USED FOR UNKNOWN INDICATION
     Dosage: UNK
     Route: 065
     Dates: start: 201111, end: 20120124

REACTIONS (3)
  - Hypoaesthesia [Recovered/Resolved]
  - Angioedema [Recovered/Resolved]
  - Face oedema [Recovered/Resolved]

NARRATIVE: CASE EVENT DATE: 20120112
